FAERS Safety Report 4350413-1 (Version None)
Quarter: 2004Q2

REPORT INFORMATION
  Report Type: 
  Country: None (occurrence: None)
  Receive Date: 20040428
  Receipt Date: 20040428
  Transmission Date: 20050107
  Serious: Yes (Other)
  Sender: FDA-Public Use
  Company Number: None

PATIENT
  Age: 31 Year
  Sex: Female
  Weight: 63.5 kg

DRUGS (2)
  1. MUCOMYST [Suspect]
     Dosage: 600 MG BID PO
     Route: 048
     Dates: start: 20040422, end: 20040427
  2. MUCINEX [Suspect]
     Dosage: 600 MG BID PO
     Route: 048

REACTIONS (1)
  - MEDICATION ERROR [None]
